FAERS Safety Report 6785215-X (Version None)
Quarter: 2010Q2

REPORT INFORMATION
  Report Type: 
  Country: None (occurrence: None)
  Receive Date: 20100622
  Receipt Date: 20100622
  Transmission Date: 20101027
  Serious: Yes (Hospitalization)
  Sender: FDA-Public Use
  Company Number: None

PATIENT
  Age: 82 Year
  Sex: Female
  Weight: 45 kg

DRUGS (11)
  1. POTASSIUM CHLORIDE [Suspect]
     Indication: DIURETIC THERAPY
     Dosage: PO  (CHRONIC)
     Route: 048
  2. LISINOPRIL [Suspect]
     Indication: HYPERTENSION
     Dosage: 10MG BID PO (CHRONIC)
     Route: 048
  3. AGGRENOX [Concomitant]
  4. VIT D [Concomitant]
  5. ALPHAGAN [Concomitant]
  6. TRAVATAN [Concomitant]
  7. ANTIVERT [Concomitant]
  8. LOMOTIL [Concomitant]
  9. ASPIRIN [Concomitant]
  10. HCTZ/MAMTERENE [Concomitant]
  11. . [Concomitant]

REACTIONS (2)
  - REFUSAL OF TREATMENT BY PATIENT [None]
  - RENAL FAILURE ACUTE [None]
